FAERS Safety Report 8010800-7 (Version None)
Quarter: 2011Q4

REPORT INFORMATION
  Report Type: 
  Country: None (occurrence: None)
  Receive Date: 20111228
  Receipt Date: 20111215
  Transmission Date: 20120403
  Serious: Yes (Hospitalization)
  Sender: FDA-Public Use
  Company Number: FR-SANOFI-AVENTIS-2011SA082117

PATIENT
  Age: 77 Year
  Sex: Male

DRUGS (8)
  1. VOLTAREN [Interacting]
     Route: 048
  2. PLAVIX [Suspect]
     Route: 048
     Dates: end: 20110622
  3. FUROSEMIDE [Interacting]
     Route: 048
  4. METFORMIN HYDROCHLORIDE/VILDAGLIPTIN [Suspect]
     Indication: TYPE 2 DIABETES MELLITUS
     Route: 048
     Dates: end: 20110622
  5. DIAMICRON [Suspect]
     Indication: TYPE 2 DIABETES MELLITUS
     Route: 048
     Dates: end: 20110622
  6. CLARITHROMYCIN [Suspect]
     Indication: INFECTION PROPHYLAXIS
     Route: 048
     Dates: start: 20110614, end: 20110615
  7. PERINDOPRIL ERBUMINE [Interacting]
     Route: 048
     Dates: end: 20110622
  8. LYRICA [Concomitant]
     Indication: DIABETIC NEUROPATHY
     Route: 048
     Dates: start: 20110906

REACTIONS (3)
  - RENAL FAILURE ACUTE [None]
  - HYPERKALAEMIA [None]
  - METABOLIC ACIDOSIS [None]
